FAERS Safety Report 7863033-9 (Version None)
Quarter: 2011Q4

REPORT INFORMATION
  Report Type: 
  Country: None (occurrence: None)
  Receive Date: 20111027
  Receipt Date: 20101124
  Transmission Date: 20120403
  Serious: No
  Sender: FDA-Public Use
  Company Number: US-AMGEN-USASP2010006409

PATIENT
  Age: 62 Year
  Sex: Female

DRUGS (2)
  1. ENBREL [Suspect]
     Indication: RHEUMATOID ARTHRITIS
     Dosage: 25 MG, 3 TIMES/WK
     Dates: start: 20090519
  2. METHOTREXATE [Concomitant]
     Dates: start: 20090519

REACTIONS (5)
  - INJECTION SITE ERYTHEMA [None]
  - ARTHRALGIA [None]
  - OEDEMA PERIPHERAL [None]
  - INJECTION SITE PAIN [None]
  - INJECTION SITE PRURITUS [None]
